FAERS Safety Report 9445644 (Version 1)
Quarter: 2013Q3

REPORT INFORMATION
  Report Type: Spontaneous
  Country: CH (occurrence: CH)
  Receive Date: 20130807
  Receipt Date: 20130807
  Transmission Date: 20140515
  Serious: Yes (Other)
  Sender: FDA-Public Use
  Company Number: CH-MYLANLABS-2013S1016903

PATIENT
  Age: 5 Month
  Sex: Female
  Weight: 6.9 kg

DRUGS (5)
  1. VIGABATRIN [Suspect]
     Indication: INFANTILE SPASMS
     Dosage: INCREASED TO 150 MG/KG/DAY AFTER 2 WEEKS
     Route: 065
  2. METHYLPREDNISOLONE [Suspect]
     Indication: INFANTILE SPASMS
     Dosage: 15 MG/KG/DAY
     Route: 065
  3. SYNACTHEN [Suspect]
     Indication: INFANTILE SPASMS
     Dosage: 0.025 MG/KG/DAY OVER A 4-MONTH PERIOD
     Route: 065
  4. VALPROIC ACID [Suspect]
     Indication: INFANTILE SPASMS
     Dosage: 30 MG/KG/DAY
     Route: 065
  5. SULTIAME [Concomitant]
     Indication: INFANTILE SPASMS
     Dosage: 10 MG/KG/DAY
     Route: 065

REACTIONS (7)
  - Encephalopathy [Recovered/Resolved]
  - Extrapyramidal disorder [Recovered/Resolved]
  - Hypokalaemia [Recovered/Resolved]
  - Gamma-glutamyltransferase increased [Recovered/Resolved]
  - Thrombocytopenia [Recovered/Resolved]
  - Myopathy [Recovered/Resolved]
  - Nuclear magnetic resonance imaging brain abnormal [Recovered/Resolved]
